FAERS Safety Report 9387460 (Version 1)
Quarter: 2013Q3

REPORT INFORMATION
  Report Type: Spontaneous
  Country: AU (occurrence: None)
  Receive Date: 20130702
  Receipt Date: 20130702
  Transmission Date: 20140515
  Serious: Yes (Life-Threatening)
  Sender: FDA-Public Use
  Company Number: 2013P1009659

PATIENT
  Age: 55 Year
  Sex: Male

DRUGS (1)
  1. NEOSTIGMINE [Suspect]
     Indication: OBSTRUCTION

REACTIONS (8)
  - Tachycardia [None]
  - Labile blood pressure [None]
  - Abdominal distension [None]
  - Flatulence [None]
  - Large intestine perforation [None]
  - Peritonitis [None]
  - Sepsis [None]
  - Subdiaphragmatic abscess [None]
